FAERS Safety Report 14285021 (Version 2)
Quarter: 2018Q1

REPORT INFORMATION
  Report Type: Spontaneous
  Country: US (occurrence: US)
  Receive Date: 20171214
  Receipt Date: 20180213
  Transmission Date: 20180509
  Serious: No
  Sender: FDA-Public Use
  Company Number: US-LEO PHARMA-306055

PATIENT
  Age: 43 Year
  Sex: Female

DRUGS (1)
  1. PICATO [Suspect]
     Active Substance: INGENOL MEBUTATE
     Indication: SKIN CANCER
     Route: 061
     Dates: start: 20171203

REACTIONS (4)
  - Swelling [Recovered/Resolved]
  - Lacrimation increased [Recovered/Resolved]
  - Lip swelling [Recovered/Resolved]
  - Product use in unapproved indication [Unknown]

NARRATIVE: CASE EVENT DATE: 20171204
